FAERS Safety Report 10950884 (Version 1)
Quarter: 2015Q1

REPORT INFORMATION
  Report Type: Spontaneous
  Country: US (occurrence: None)
  Receive Date: 20150226
  Receipt Date: 20150226
  Transmission Date: 20150721
  Serious: Yes (Hospitalization)
  Sender: FDA-Public Use
  Company Number: 2014TUS003367

PATIENT
  Age: 67 Year
  Sex: Female
  Weight: 72.6 kg

DRUGS (11)
  1. CARAFATE (SUCRALFATE) [Concomitant]
  2. SIMVASTATIIN (SIMVASTATIN) [Concomitant]
  3. LISINOPRIL (LISINOPRIL) [Concomitant]
     Active Substance: LISINOPRIL
  4. PREVACID [Suspect]
     Active Substance: LANSOPRAZOLE
     Indication: GASTROOESOPHAGEAL REFLUX DISEASE
     Dosage: 2 CAPSULES
     Route: 048
     Dates: start: 2008, end: 2012
  5. LAMOTRIGINE (LAMOTRIGINE) [Concomitant]
     Active Substance: LAMOTRIGINE
  6. DIAZEPAM (DIAZEPAM) [Concomitant]
     Active Substance: DIAZEPAM
  7. LYRICA [Concomitant]
     Active Substance: PREGABALIN
  8. TRAMADOL (TRAMADOL) [Concomitant]
     Active Substance: TRAMADOL
  9. BUPROPION (BUPROPION) [Concomitant]
     Active Substance: BUPROPION
  10. DULOXETINE (DULOXETINE) [Concomitant]
     Active Substance: DULOXETINE
  11. SPIRIVA (TIOTROPIUM BROMIDE) [Concomitant]

REACTIONS (1)
  - Drug ineffective [None]
